FAERS Safety Report 11924177 (Version 1)
Quarter: 2016Q1

REPORT INFORMATION
  Report Type: Spontaneous
  Country: CA (occurrence: CA)
  Receive Date: 20160118
  Receipt Date: 20160118
  Transmission Date: 20160526
  Serious: Yes (Hospitalization)
  Sender: FDA-Public Use
  Company Number: CA-AMGEN-CANSP2016002997

PATIENT
  Age: 91 Year
  Sex: Female

DRUGS (9)
  1. HUMALIN [Concomitant]
     Active Substance: INSULIN NOS
     Dosage: 30/70/20/10 UNITS
  2. CELEXA [Concomitant]
     Active Substance: CITALOPRAM HYDROBROMIDE
     Dosage: 10 MG, QD
  3. TRADJENTA [Concomitant]
     Active Substance: LINAGLIPTIN
     Dosage: 5 MG, QD
  4. SYNTHROID [Concomitant]
     Active Substance: LEVOTHYROXINE SODIUM
     Dosage: 0.112 MG, QD
  5. PROLIA [Suspect]
     Active Substance: DENOSUMAB
     Indication: OSTEOPOROSIS POSTMENOPAUSAL
     Dosage: UNK, UNK
     Route: 065
     Dates: start: 201410
  6. CALCIUM [Concomitant]
     Active Substance: CALCIUM
  7. DIAMICRON [Concomitant]
     Active Substance: GLICLAZIDE
     Dosage: 120 MG, QD
  8. VITAMIN D                          /00107901/ [Concomitant]
     Active Substance: ERGOCALCIFEROL
  9. ARICEPT [Concomitant]
     Active Substance: DONEPEZIL HYDROCHLORIDE
     Dosage: 10 MG, QD

REACTIONS (4)
  - Inappropriate schedule of drug administration [Unknown]
  - Hyperhidrosis [Unknown]
  - Tremor [Unknown]
  - Hyperglycaemia [Unknown]

NARRATIVE: CASE EVENT DATE: 2015
